FAERS Safety Report 19004428 (Version 2)
Quarter: 2021Q3

REPORT INFORMATION
  Report Type: Spontaneous
  Country: US (occurrence: US)
  Receive Date: 20210312
  Receipt Date: 20210721
  Transmission Date: 20211014
  Serious: Yes (Other)
  Sender: FDA-Public Use
  Company Number: US-GILEAD-2021-0519923

PATIENT
  Age: 58 Year
  Sex: Male
  Weight: 96.15 kg

DRUGS (60)
  1. REYATAZ [Concomitant]
     Active Substance: ATAZANAVIR SULFATE
  2. ALBUTEROL [SALBUTAMOL] [Concomitant]
     Active Substance: ALBUTEROL
  3. METOPROLOL. [Concomitant]
     Active Substance: METOPROLOL
  4. CHANTIX [Concomitant]
     Active Substance: VARENICLINE TARTRATE
  5. ROPINIROLE. [Concomitant]
     Active Substance: ROPINIROLE
  6. SPIRIVA [Concomitant]
     Active Substance: TIOTROPIUM BROMIDE MONOHYDRATE
  7. STIOLTO RESPIMAT [Concomitant]
     Active Substance: OLODATEROL HYDROCHLORIDE\TIOTROPIUM BROMIDE MONOHYDRATE
  8. NORVIR [Concomitant]
     Active Substance: RITONAVIR
  9. ATORVASTATIN [Concomitant]
     Active Substance: ATORVASTATIN
  10. BUPROPION. [Concomitant]
     Active Substance: BUPROPION
  11. NEOPOLYDEX [Concomitant]
  12. PROAIR HFA [Concomitant]
     Active Substance: ALBUTEROL SULFATE
  13. PREZISTA [Concomitant]
     Active Substance: DARUNAVIR ETHANOLATE
  14. DIAZEPAM. [Concomitant]
     Active Substance: DIAZEPAM
  15. DIPHENOXYLATE [Concomitant]
     Active Substance: DIPHENOXYLATE
  16. LOPERAMIDE [Concomitant]
     Active Substance: LOPERAMIDE
  17. PROPRANOLOL [Concomitant]
     Active Substance: PROPRANOLOL HYDROCHLORIDE
  18. TAMSULOSIN [Concomitant]
     Active Substance: TAMSULOSIN
  19. VIREAD [Suspect]
     Active Substance: TENOFOVIR DISOPROXIL FUMARATE
     Indication: HIV INFECTION
     Dosage: UNK
     Route: 048
     Dates: start: 2009
  20. ISENTRESS [Concomitant]
     Active Substance: RALTEGRAVIR POTASSIUM
  21. DIOVAN [Concomitant]
     Active Substance: VALSARTAN
  22. FAMOTIDINE. [Concomitant]
     Active Substance: FAMOTIDINE
  23. LORAZEPAM. [Concomitant]
     Active Substance: LORAZEPAM
  24. OXYCODONE [Concomitant]
     Active Substance: OXYCODONE
  25. TERAZOSIN [Concomitant]
     Active Substance: TERAZOSIN HYDROCHLORIDE
  26. TRAZODONE [Concomitant]
     Active Substance: TRAZODONE HYDROCHLORIDE
  27. LOSARTAN. [Concomitant]
     Active Substance: LOSARTAN
  28. ATENOLOL. [Concomitant]
     Active Substance: ATENOLOL
  29. LISINOPRIL. [Concomitant]
     Active Substance: LISINOPRIL
  30. PENICILLIN NOS [Concomitant]
     Active Substance: PENICILLIN
  31. PREDNISONE. [Concomitant]
     Active Substance: PREDNISONE
  32. ROBAFEN [GUAIFENESIN] [Concomitant]
  33. TEMAZEPAM. [Concomitant]
     Active Substance: TEMAZEPAM
  34. TRAMADOL. [Concomitant]
     Active Substance: TRAMADOL
  35. VIRTUSSIN AC [Concomitant]
     Active Substance: CODEINE PHOSPHATE\GUAIFENESIN
  36. CYMBALTA [Concomitant]
     Active Substance: DULOXETINE HYDROCHLORIDE
  37. GABAPENTIN. [Concomitant]
     Active Substance: GABAPENTIN
  38. HYDROCODONE [Concomitant]
     Active Substance: HYDROCODONE
  39. ONDANSETRON [Concomitant]
     Active Substance: ONDANSETRON
  40. PROMETHAZINE [Concomitant]
     Active Substance: PROMETHAZINE HYDROCHLORIDE
  41. RANITIDINE. [Concomitant]
     Active Substance: RANITIDINE
  42. VENLAFAXINE [Concomitant]
     Active Substance: VENLAFAXINE HYDROCHLORIDE
  43. VIREAD [Suspect]
     Active Substance: TENOFOVIR DISOPROXIL FUMARATE
     Dosage: UNK
     Route: 065
     Dates: start: 20050901, end: 20160801
  44. TIVICAY [Concomitant]
     Active Substance: DOLUTEGRAVIR SODIUM
  45. ALBUTEROL SULFATE. [Concomitant]
     Active Substance: ALBUTEROL SULFATE
  46. CLONAZEPAM. [Concomitant]
     Active Substance: CLONAZEPAM
  47. ESCITALOPRAM [Concomitant]
     Active Substance: ESCITALOPRAM OXALATE
  48. MECLIZINE [Concomitant]
     Active Substance: MECLIZINE HYDROCHLORIDE
  49. NAPROXEN. [Concomitant]
     Active Substance: NAPROXEN
  50. POLYETHYLENE GLYCOL 3350. [Concomitant]
     Active Substance: POLYETHYLENE GLYCOL 3350
  51. QUETIAPINE. [Concomitant]
     Active Substance: QUETIAPINE
  52. VIAGRA [Concomitant]
     Active Substance: SILDENAFIL CITRATE
  53. DESCOVY [Concomitant]
     Active Substance: EMTRICITABINE\TENOFOVIR ALAFENAMIDE FUMARATE
  54. EPZICOM [Concomitant]
     Active Substance: ABACAVIR SULFATE\LAMIVUDINE
  55. METFORMIN [Concomitant]
     Active Substance: METFORMIN HYDROCHLORIDE
  56. AZITHROMYCIN ANHYDROUS. [Concomitant]
     Active Substance: AZITHROMYCIN ANHYDROUS
  57. FLOVENT [Concomitant]
     Active Substance: FLUTICASONE PROPIONATE
  58. HYDROCHLOROTHIAZIDE. [Concomitant]
     Active Substance: HYDROCHLOROTHIAZIDE
  59. IBUPROFEN. [Concomitant]
     Active Substance: IBUPROFEN
  60. PROVENTIL [Concomitant]
     Active Substance: ALBUTEROL

REACTIONS (8)
  - Osteoporosis [Not Recovered/Not Resolved]
  - Emotional distress [Not Recovered/Not Resolved]
  - Gait disturbance [Not Recovered/Not Resolved]
  - Anhedonia [Not Recovered/Not Resolved]
  - Anxiety [Not Recovered/Not Resolved]
  - Bone density decreased [Unknown]
  - Chronic kidney disease [Not Recovered/Not Resolved]
  - Pain [Not Recovered/Not Resolved]

NARRATIVE: CASE EVENT DATE: 20140828
